FAERS Safety Report 6277831-9 (Version None)
Quarter: 2009Q3

REPORT INFORMATION
  Report Type: 
  Country: None (occurrence: None)
  Receive Date: 20090717
  Receipt Date: 20090717
  Transmission Date: 20100115
  Serious: Yes (Other)
  Sender: FDA-Public Use
  Company Number: None

PATIENT
  Age: 42 Year
  Sex: Female
  Weight: 58.0604 kg

DRUGS (1)
  1. AMBIEN CR [Suspect]
     Indication: FIBROMYALGIA
     Dosage: 10-11 MONTHS
     Dates: start: 20070712, end: 20080520

REACTIONS (6)
  - AFFECT LABILITY [None]
  - DECREASED APPETITE [None]
  - DEPRESSION [None]
  - EMOTIONAL DISORDER [None]
  - HYPOAESTHESIA [None]
  - SUICIDAL IDEATION [None]
